FAERS Safety Report 6294834-9 (Version None)
Quarter: 2009Q3

REPORT INFORMATION
  Report Type: 
  Country: None (occurrence: None)
  Receive Date: 20090803
  Receipt Date: 20090723
  Transmission Date: 20100115
  Serious: Yes (Hospitalization, Other)
  Sender: FDA-Public Use
  Company Number: PHHY2009JP02411

PATIENT
  Sex: Female
  Weight: 33 kg

DRUGS (12)
  1. VOLTAREN [Suspect]
     Indication: ORTHOPEDIC PROCEDURE
     Dosage: 25 MG
     Route: 054
     Dates: start: 20081126, end: 20090115
  2. VOLTAREN [Suspect]
     Indication: PAIN
  3. ARIXTRA [Suspect]
     Indication: THROMBOSIS PROPHYLAXIS
     Dosage: 2.5MG PER DAY
     Route: 058
     Dates: start: 20081209, end: 20081215
  4. LOXONIN [Suspect]
     Indication: PROCEDURAL PAIN
     Dosage: 180 MG, UNK
     Route: 048
     Dates: start: 20081127, end: 20090113
  5. CEFDINIR [Suspect]
     Indication: INFECTION PROPHYLAXIS
     Dosage: 300 MG, UNK
     Route: 048
     Dates: start: 20081127, end: 20090113
  6. GASMOTIN [Concomitant]
     Indication: ABDOMINAL DISTENSION
     Dosage: 10 MG, UNK
     Route: 048
  7. GASMOTIN [Concomitant]
     Indication: CONSTIPATION
  8. GRANDAXIN [Concomitant]
     Indication: AUTONOMIC NERVOUS SYSTEM IMBALANCE
     Dosage: 100 MG, UNK
     Route: 048
     Dates: start: 19890101
  9. GASTER D [Concomitant]
     Dosage: 20 MG, UNK
     Route: 048
     Dates: start: 19890101
  10. VESICARE [Concomitant]
     Indication: POLLAKIURIA
     Dosage: 5 MG, UNK
     Route: 048
     Dates: start: 19890101
  11. DEPAS [Concomitant]
     Indication: POLLAKIURIA
     Dosage: 0.5 MG, UNK
     Route: 048
     Dates: start: 19890101
  12. MUCOSTA [Concomitant]
     Indication: PROPHYLAXIS
     Dosage: 300 MG, UNK
     Route: 048
     Dates: start: 20081127, end: 20090113

REACTIONS (6)
  - HAEMATOCRIT DECREASED [None]
  - HAEMATOMA [None]
  - HAEMOGLOBIN DECREASED [None]
  - HAEMORRHAGE [None]
  - POSTOPERATIVE WOUND COMPLICATION [None]
  - SURGERY [None]
